FAERS Safety Report 19656199 (Version 3)
Quarter: 2024Q1

REPORT INFORMATION
  Report Type: Spontaneous
  Country: GB (occurrence: GB)
  Receive Date: 20210804
  Receipt Date: 20240131
  Transmission Date: 20240409
  Serious: Yes (Death, Other)
  Sender: FDA-Public Use
  Company Number: GB-ROCHE-2870541

PATIENT

DRUGS (19)
  1. ATEZOLIZUMAB [Suspect]
     Active Substance: ATEZOLIZUMAB
     Indication: Non-small cell lung cancer metastatic
     Dosage: 1200 MILLIGRAM, 3W
     Route: 041
     Dates: start: 20210414, end: 20210621
  2. BEVACIZUMAB [Suspect]
     Active Substance: BEVACIZUMAB
     Indication: Non-small cell lung cancer metastatic
     Dosage: 700 MILLIGRAM
     Route: 065
     Dates: start: 20210507
  3. CARBOPLATIN [Suspect]
     Active Substance: CARBOPLATIN
     Indication: Non-small cell lung cancer metastatic
     Dosage: 330 MILLIGRAM
     Route: 065
     Dates: start: 20210507
  4. PACLITAXEL [Suspect]
     Active Substance: PACLITAXEL
     Indication: Non-small cell lung cancer metastatic
     Dosage: 144 MILLIGRAM
     Route: 065
     Dates: start: 20210507
  5. CHLORPHENIRAMINE MALEATE [Concomitant]
     Active Substance: CHLORPHENIRAMINE MALEATE
     Dosage: 10 MILLIGRAM
     Route: 065
     Dates: start: 20210621, end: 20210621
  6. CHLORPHENIRAMINE MALEATE [Concomitant]
     Active Substance: CHLORPHENIRAMINE MALEATE
     Indication: Product used for unknown indication
     Dosage: 20 MILLIGRAM
     Route: 065
     Dates: start: 20210528, end: 20210528
  7. DEXAMETHASONE [Concomitant]
     Active Substance: DEXAMETHASONE
     Indication: Prophylaxis
     Dosage: UNK, Q8H
     Route: 065
     Dates: start: 20210622, end: 20210624
  8. DEXAMETHASONE [Concomitant]
     Active Substance: DEXAMETHASONE
     Dosage: 20 MILLIGRAM
     Route: 065
     Dates: start: 20210528, end: 20210528
  9. DEXAMETHASONE [Concomitant]
     Active Substance: DEXAMETHASONE
     Dosage: 20 MILLIGRAM
     Route: 065
     Dates: start: 20210621, end: 20210621
  10. DEXAMETHASONE [Concomitant]
     Active Substance: DEXAMETHASONE
     Dosage: UNK UNK, Q8H
     Route: 065
     Dates: start: 20210529, end: 20210531
  11. DOMPERIDONE [Concomitant]
     Active Substance: DOMPERIDONE
     Indication: Prophylaxis
     Dosage: UNK, Q8H
     Route: 065
     Dates: start: 20210621, end: 20210625
  12. DOMPERIDONE [Concomitant]
     Active Substance: DOMPERIDONE
     Dosage: UNK, Q8H
     Route: 065
     Dates: start: 20210528, end: 20210602
  13. FELODIPINE [Concomitant]
     Active Substance: FELODIPINE
     Indication: Product used for unknown indication
     Dosage: UNKNOWN
     Route: 065
  14. ONDANSETRON [Concomitant]
     Active Substance: ONDANSETRON
     Indication: Product used for unknown indication
     Dosage: 8 MILLIGRAM
     Route: 065
     Dates: start: 20210621, end: 20210621
  15. ONDANSETRON [Concomitant]
     Active Substance: ONDANSETRON
     Dosage: 8 MILLIGRAM
     Route: 065
     Dates: start: 20210528, end: 20210528
  16. PFIZER BIONTECH COVID VACCINE [Concomitant]
     Indication: Immunisation
     Dosage: UNKNOWN
     Route: 065
  17. RANITIDINE [Concomitant]
     Active Substance: RANITIDINE
     Indication: Product used for unknown indication
     Dosage: 50 MILLIGRAM
     Route: 065
     Dates: start: 20210621, end: 20210621
  18. RANITIDINE [Concomitant]
     Active Substance: RANITIDINE
     Dosage: 50 MILLIGRAM
     Route: 065
     Dates: start: 20210528, end: 20210528
  19. SIMVASTATIN [Concomitant]
     Active Substance: SIMVASTATIN
     Indication: Product used for unknown indication
     Dosage: UNKNOWN
     Route: 065

REACTIONS (2)
  - Alopecia [Not Recovered/Not Resolved]
  - Lung neoplasm malignant [Fatal]

NARRATIVE: CASE EVENT DATE: 20210615
